FAERS Safety Report 5002299-X (Version None)
Quarter: 2006Q2

REPORT INFORMATION
  Report Type: 
  Country: None (occurrence: None)
  Receive Date: 20060510
  Receipt Date: 20060503
  Transmission Date: 20061013
  Serious: Yes (Other)
  Sender: FDA-Public Use
  Company Number: 2006059220

PATIENT
  Sex: Male
  Weight: 72.5755 kg

DRUGS (1)
  1. BENADRYL [Suspect]
     Indication: HYPERSENSITIVITY
     Dates: start: 19720101, end: 19720101

REACTIONS (3)
  - HALLUCINATION [None]
  - RESTLESSNESS [None]
  - VISUAL DISTURBANCE [None]
